FAERS Safety Report 15420918 (Version 1)
Quarter: 2018Q3

REPORT INFORMATION
  Report Type: Spontaneous
  Country: US (occurrence: US)
  Receive Date: 20180924
  Receipt Date: 20180924
  Transmission Date: 20181010
  Serious: No
  Sender: FDA-Public Use
  Company Number: US-ALLERGAN-1768767US

PATIENT
  Age: 56 Year
  Sex: Male

DRUGS (1)
  1. LINZESS [Suspect]
     Active Substance: LINACLOTIDE
     Indication: PRODUCT USED FOR UNKNOWN INDICATION
     Dosage: 30 DOSAGE FORMS, SINGLE
     Route: 065
     Dates: start: 20171127, end: 20171127

REACTIONS (4)
  - Wrong technique in product usage process [Unknown]
  - Prescription drug used without a prescription [Unknown]
  - Incorrect dose administered [Unknown]
  - Abnormal behaviour [Recovered/Resolved]

NARRATIVE: CASE EVENT DATE: 20171127
